FAERS Safety Report 14254194 (Version 1)
Quarter: 2017Q4

REPORT INFORMATION
  Report Type: Spontaneous
  Country: CN (occurrence: CN)
  Receive Date: 20171205
  Receipt Date: 20171205
  Transmission Date: 20180321
  Serious: Yes (Hospitalization, Other)
  Sender: FDA-Public Use
  Company Number: CN-PFIZER INC-2017516777

PATIENT
  Age: 71 Year
  Sex: Female
  Weight: 60 kg

DRUGS (6)
  1. FOSINOPRIL SODIUM. [Concomitant]
     Active Substance: FOSINOPRIL SODIUM
     Indication: HYPERTENSION
     Dosage: 10 MG, 1X/DAY
     Route: 048
     Dates: start: 20170828, end: 20171008
  2. RABEPRAZOLE SODIUM. [Concomitant]
     Active Substance: RABEPRAZOLE SODIUM
     Indication: GASTRIC PH DECREASED
     Dosage: 20 MG, 1X/DAY
     Route: 048
     Dates: start: 20170828, end: 20171008
  3. GLIPIZIDE. [Suspect]
     Active Substance: GLIPIZIDE
     Indication: DIABETES MELLITUS
     Dosage: 5 MG, 1X/DAY
     Route: 048
     Dates: start: 20170828, end: 20171008
  4. SAXAGLIPTIN [Suspect]
     Active Substance: SAXAGLIPTIN
     Indication: DIABETES MELLITUS
     Dosage: 5 MG, 1X/DAY
     Route: 048
     Dates: start: 20170828, end: 20171008
  5. LUO YA [Concomitant]
     Indication: ARRHYTHMIA
     Dosage: 2.5 MG, 1X/DAY
     Route: 048
     Dates: start: 20170828, end: 20171008
  6. RABEPRAZOLE SODIUM. [Concomitant]
     Active Substance: RABEPRAZOLE SODIUM
     Indication: MUSCLE SPASMS

REACTIONS (2)
  - Hypoglycaemia [Recovered/Resolved]
  - Blood pressure inadequately controlled [Recovered/Resolved]

NARRATIVE: CASE EVENT DATE: 20171008
